FAERS Safety Report 4951469-5 (Version None)
Quarter: 2006Q1

REPORT INFORMATION
  Report Type: 
  Country: None (occurrence: None)
  Receive Date: 20060317
  Receipt Date: 20060308
  Transmission Date: 20060701
  Serious: Yes (Life-Threatening, Hospitalization, Other)
  Sender: FDA-Public Use
  Company Number: 2006033682

PATIENT
  Sex: Female
  Weight: 58.0604 kg

DRUGS (9)
  1. LIPITOR [Suspect]
     Indication: BLOOD CHOLESTEROL
     Dosage: 20 MG (20 MG, 1 IN 1 D)
     Dates: start: 20010201
  2. LIPITOR [Suspect]
     Indication: LOW DENSITY LIPOPROTEIN
     Dosage: 20 MG (20 MG, 1 IN 1 D)
     Dates: start: 20010201
  3. ALL OTHER THERAPEUTIC PRODUCTS (ALL OTHER THERAPEUTIC PRODUCTS) [Suspect]
     Indication: ILL-DEFINED DISORDER
     Dates: start: 20020101, end: 20020101
  4. LEXAPRO [Concomitant]
  5. TOPROL-XL [Concomitant]
  6. CENTRUM SILVER (ASCORBIC ACID, CALCIUM, MINERALS NOS, RETINOL, TOCOPHE [Concomitant]
  7. DEPAKOTE [Concomitant]
  8. PROTONIX [Concomitant]
  9. PLAVIX [Concomitant]

REACTIONS (21)
  - ARTERIAL BYPASS OPERATION [None]
  - ARTERIAL STENT INSERTION [None]
  - ASTHENIA [None]
  - BLOOD CHOLESTEROL INCREASED [None]
  - CARDIAC INFECTION [None]
  - CEREBROVASCULAR ACCIDENT [None]
  - CEREBROVASCULAR DISORDER [None]
  - CONSTIPATION [None]
  - HYPOKINESIA [None]
  - IATROGENIC INFECTION [None]
  - INFECTIOUS MONONUCLEOSIS [None]
  - LOW DENSITY LIPOPROTEIN ABNORMAL [None]
  - MEMORY IMPAIRMENT [None]
  - PAIN [None]
  - PERICARDITIS [None]
  - PHARMACEUTICAL PRODUCT COMPLAINT [None]
  - POOR QUALITY DRUG ADMINISTERED [None]
  - STENT OCCLUSION [None]
  - SURGICAL PROCEDURE REPEATED [None]
  - UNEVALUABLE EVENT [None]
  - WEIGHT INCREASED [None]
